FAERS Safety Report 4818341-2 (Version None)
Quarter: 2005Q4

REPORT INFORMATION
  Report Type: 
  Country: None (occurrence: None)
  Receive Date: 20051102
  Receipt Date: 20050915
  Transmission Date: 20060501
  Serious: Yes (Hospitalization)
  Sender: FDA-Public Use
  Company Number: 2005UW13735

PATIENT
  Age: 42 Month
  Sex: Male

DRUGS (5)
  1. PULMICORT RESPULES [Suspect]
     Indication: ASTHMA
     Dosage: DURING MODERATE SYMPTOMS
     Route: 055
     Dates: start: 20020101
  2. PULMICORT RESPULES [Suspect]
     Dosage: DURING TIMES OF MINIMAL ASTHMA
     Route: 055
     Dates: start: 20020101
  3. PULMICORT RESPULES [Suspect]
     Route: 055
  4. XOPENEX [Concomitant]
  5. BENADRYL [Concomitant]

REACTIONS (1)
  - VASCULITIS [None]
